FAERS Safety Report 25221689 (Version 1)
Quarter: 2025Q2

REPORT INFORMATION
  Report Type: Spontaneous
  Country: US (occurrence: None)
  Receive Date: 20250421
  Receipt Date: 20250421
  Transmission Date: 20250717
  Serious: Yes (Hospitalization)
  Sender: FDA-CTU
  Company Number: None

PATIENT
  Age: 18 Year
  Sex: Female
  Weight: 93.9 kg

DRUGS (1)
  1. CEFTRIAXONE [Suspect]
     Active Substance: CEFTRIAXONE
     Indication: Sepsis
     Dosage: 2000 MG DAILY INTRAVENOUS
     Route: 042
     Dates: start: 20250412, end: 20250412

REACTIONS (2)
  - Anaphylactic reaction [None]
  - Pancreatitis acute [None]

NARRATIVE: CASE EVENT DATE: 20250412
